FAERS Safety Report 17603140 (Version 2)
Quarter: 2020Q2

REPORT INFORMATION
  Report Type: Spontaneous
  Country: SG (occurrence: SG)
  Receive Date: 20200331
  Receipt Date: 20200407
  Transmission Date: 20200713
  Serious: Yes (Hospitalization, Other)
  Sender: FDA-Public Use
  Company Number: SG-AMGEN-SGPSP2020050871

PATIENT
  Age: 63 Year
  Sex: Female

DRUGS (1)
  1. NESP [Suspect]
     Active Substance: DARBEPOETIN ALFA
     Indication: ANAEMIA OF CHRONIC DISEASE
     Dosage: UNK
     Route: 058

REACTIONS (1)
  - Aplasia pure red cell [Unknown]
